FAERS Safety Report 14475436 (Version 1)
Quarter: 2018Q1

REPORT INFORMATION
  Report Type: Other
  Country: FR (occurrence: FR)
  Receive Date: 20180201
  Receipt Date: 20180201
  Transmission Date: 20180509
  Serious: Yes (Death, Other)
  Sender: FDA-Public Use
  Company Number: FR-TAKEDA-2018TUS002736

PATIENT
  Age: 26 Year
  Sex: Male

DRUGS (3)
  1. VINCRISTINE HOSPIRA [Suspect]
     Active Substance: VINCRISTINE
     Indication: B-CELL TYPE ACUTE LEUKAEMIA
     Dosage: 2 MG, UNK
     Route: 042
     Dates: start: 20170105, end: 20170105
  2. NEOFORDEX [Suspect]
     Active Substance: DEXAMETHASONE ACETATE
     Indication: B-CELL TYPE ACUTE LEUKAEMIA
     Dosage: 20 MG, BID
     Route: 048
     Dates: start: 20170105
  3. ICLUSIG [Suspect]
     Active Substance: PONATINIB
     Indication: B-CELL TYPE ACUTE LEUKAEMIA
     Dosage: 30 MG, QD
     Route: 048
     Dates: start: 20170105

REACTIONS (3)
  - Septic shock [Fatal]
  - Pneumonia influenzal [Fatal]
  - Aplasia [Not Recovered/Not Resolved]

NARRATIVE: CASE EVENT DATE: 201701
